FAERS Safety Report 21395451 (Version 3)
Quarter: 2022Q4

REPORT INFORMATION
  Report Type: Spontaneous
  Country: US (occurrence: US)
  Receive Date: 20220930
  Receipt Date: 20221102
  Transmission Date: 20230113
  Serious: No
  Sender: FDA-Public Use
  Company Number: US-UNITED THERAPEUTICS-UNT-2022-022573

PATIENT
  Age: 40 Year
  Sex: Female
  Weight: 72.109 kg

DRUGS (7)
  1. REMODULIN [Suspect]
     Active Substance: TREPROSTINIL
     Indication: Pulmonary arterial hypertension
     Dosage: UNK, CONTINUING
     Route: 058
     Dates: start: 20220915
  2. REMODULIN [Suspect]
     Active Substance: TREPROSTINIL
     Dosage: 0.034 ?G/KG, CONTINUING (PRE-FILLED WITH 3 ML PER CASSETTE. REMUNITY PUMP RATE 27MCL PER HOUR)
     Route: 058
     Dates: start: 202209
  3. REMODULIN [Suspect]
     Active Substance: TREPROSTINIL
     Dosage: UNK, CONTINUING (PRE-FILLED WITH 3 ML PER CASSETTE. REMUNITY PUMP RATE 30 MCL PER HOUR)
     Route: 058
     Dates: start: 202209
  4. REMODULIN [Suspect]
     Active Substance: TREPROSTINIL
     Dosage: 0.040 ?G/KG, CONTINUING (PHARMACY FILLED WITH 3 ML PER CASSETTE; PUMP RATE 32 MCL/HR.)
     Route: 058
     Dates: start: 2022
  5. UPTRAVI [Concomitant]
     Active Substance: SELEXIPAG
     Indication: Product used for unknown indication
     Dosage: UNK
     Route: 065
  6. ADEMPAS [Concomitant]
     Active Substance: RIOCIGUAT
     Indication: Product used for unknown indication
     Dosage: UNK
     Route: 065
  7. OPSUMIT [Concomitant]
     Active Substance: MACITENTAN
     Indication: Product used for unknown indication
     Dosage: UNK
     Route: 065

REACTIONS (3)
  - Unintentional medical device removal [Unknown]
  - Infusion site pain [Recovering/Resolving]
  - Infusion site haemorrhage [Unknown]

NARRATIVE: CASE EVENT DATE: 20220901
